FAERS Safety Report 16678298 (Version 1)
Quarter: 2019Q3

REPORT INFORMATION
  Report Type: Report from Study
  Country: US (occurrence: US)
  Receive Date: 20190807
  Receipt Date: 20190807
  Transmission Date: 20191004
  Serious: Yes (Other)
  Sender: FDA-Public Use
  Company Number: US-TEVA-2019-US-1087226

PATIENT
  Sex: Female

DRUGS (2)
  1. CLARAVIS [Suspect]
     Active Substance: ISOTRETINOIN
     Dosage: 40 MILLIGRAM DAILY;
     Route: 065
     Dates: start: 20190429, end: 201907
  2. CLARAVIS [Suspect]
     Active Substance: ISOTRETINOIN
     Dosage: PREVIOUS COURSE IN 2018-2019
     Route: 065

REACTIONS (1)
  - Unintended pregnancy [Unknown]
